FAERS Safety Report 13184879 (Version 3)
Quarter: 2017Q1

REPORT INFORMATION
  Report Type: Spontaneous
  Country: US (occurrence: US)
  Receive Date: 20170203
  Receipt Date: 20170306
  Transmission Date: 20170428
  Serious: Yes (Other)
  Sender: FDA-Public Use
  Company Number: US-GLAXOSMITHKLINE-US2017014795

PATIENT
  Age: 60 Year
  Sex: Female

DRUGS (17)
  1. SERTRALINE [Concomitant]
     Active Substance: SERTRALINE HYDROCHLORIDE
  2. INCRUSE ELLIPTA [Suspect]
     Active Substance: UMECLIDINIUM BROMIDE
     Indication: CHRONIC OBSTRUCTIVE PULMONARY DISEASE
     Dosage: 1 PUFF(S), 1D
     Route: 055
     Dates: start: 20170119
  3. ALBUTEROL SULFATE SOLUTION [Concomitant]
  4. TYLENOL [Concomitant]
     Active Substance: ACETAMINOPHEN
  5. BREO ELLIPTA [Suspect]
     Active Substance: FLUTICASONE FUROATE\VILANTEROL TRIFENATATE
     Indication: CHRONIC OBSTRUCTIVE PULMONARY DISEASE
     Dosage: 1 PUFF(S), 1D
     Route: 055
     Dates: start: 2016
  6. ZANTAC [Suspect]
     Active Substance: RANITIDINE HYDROCHLORIDE
     Indication: PRODUCT USED FOR UNKNOWN INDICATION
     Dosage: 150 MG, UNK
  7. AZITHROMYCIN ANHYDROUS. [Concomitant]
     Active Substance: AZITHROMYCIN ANHYDROUS
  8. LIDOCAINE. [Concomitant]
     Active Substance: LIDOCAINE
  9. LOSARTAN. [Concomitant]
     Active Substance: LOSARTAN
  10. TUMS [Concomitant]
     Active Substance: CALCIUM CARBONATE
  11. METHYLPREDNISOLONE. [Concomitant]
     Active Substance: METHYLPREDNISOLONE
  12. BENEFIBER [Concomitant]
     Active Substance: STARCH, WHEAT
  13. CEFUROXIME AXETIL. [Concomitant]
     Active Substance: CEFUROXIME AXETIL
  14. COQ10 [Concomitant]
     Active Substance: UBIDECARENONE
  15. METAMUCIL SUGAR FREE [Concomitant]
  16. ATORVASTATIN [Concomitant]
     Active Substance: ATORVASTATIN
  17. ASPIRIN (BABY) [Concomitant]
     Active Substance: ASPIRIN

REACTIONS (10)
  - Bronchitis [Recovering/Resolving]
  - Overdose [Unknown]
  - Drug effect decreased [Unknown]
  - Pneumonia [Recovering/Resolving]
  - Dyspnoea [Recovering/Resolving]
  - Heart rate increased [Recovered/Resolved]
  - Wheezing [Not Recovered/Not Resolved]
  - Nasopharyngitis [Unknown]
  - Dyspepsia [Unknown]
  - Product quality issue [Unknown]

NARRATIVE: CASE EVENT DATE: 20170101
